FAERS Safety Report 4783211-5 (Version None)
Quarter: 2005Q3

REPORT INFORMATION
  Report Type: 
  Country: None (occurrence: None)
  Receive Date: 20050928
  Receipt Date: 20050928
  Transmission Date: 20060218
  Serious: Yes (Other)
  Sender: FDA-Public Use
  Company Number: None

PATIENT
  Age: 45 Year
  Sex: Male
  Weight: 75 kg

DRUGS (2)
  1. OXYCONTIN [Suspect]
     Indication: PAIN MANAGEMENT
     Dosage: OXYCONTIN 80 MG TID PO
     Route: 048
     Dates: start: 20050927, end: 20050927
  2. HYDROMORPHONE HCL [Suspect]
     Dosage: HYDROMORPHONE PM IV
     Route: 042
     Dates: start: 20050927, end: 20050927

REACTIONS (2)
  - DRUG PRESCRIBING ERROR [None]
  - MEDICATION ERROR [None]
